FAERS Safety Report 17190163 (Version 2)
Quarter: 2021Q2

REPORT INFORMATION
  Report Type: Report from Study
  Country: HK (occurrence: HK)
  Receive Date: 20191223
  Receipt Date: 20210531
  Transmission Date: 20210716
  Serious: Yes (Death, Other)
  Sender: FDA-Public Use
  Company Number: HK-AUROBINDO-AUR-APL-2019-105072

PATIENT
  Age: 11 Year
  Sex: Male

DRUGS (5)
  1. MELPHALAN. [Suspect]
     Active Substance: MELPHALAN
     Indication: BONE MARROW CONDITIONING REGIMEN
     Dosage: 140 MILLIGRAM/SQ. METER
     Route: 065
  2. ANTITHYMOCYTE IMMUNOGLOBULIN [Suspect]
     Active Substance: THYMOCYTE IMMUNE GLOBULIN NOS
     Indication: BONE MARROW CONDITIONING REGIMEN
     Dosage: UNK
     Route: 065
  3. LOMUSTINE. [Suspect]
     Active Substance: LOMUSTINE
     Indication: MEDULLOBLASTOMA
     Dosage: 600 MG/M2, UNK (NUMBER OF SEPARATE DOSAGES: 1)
     Route: 065
  4. FLUDARABINE [Suspect]
     Active Substance: FLUDARABINE PHOSPHATE
     Indication: BONE MARROW CONDITIONING REGIMEN
     Dosage: 150 MILLIGRAM/SQ. METER
     Route: 065
  5. CISPLATIN. [Suspect]
     Active Substance: CISPLATIN
     Indication: MEDULLOBLASTOMA
     Dosage: 600 MG/M2, UNK (NUMBER OF SEPARATE DOSAGES: 1)
     Route: 065

REACTIONS (4)
  - Second primary malignancy [Recovered/Resolved]
  - Myelodysplastic syndrome [Recovered/Resolved]
  - Venoocclusive liver disease [Fatal]
  - Toxicity to various agents [Unknown]
